FAERS Safety Report 8616858-6 (Version None)
Quarter: 2012Q3

REPORT INFORMATION
  Report Type: 
  Country: None (occurrence: None)
  Receive Date: 20120823
  Receipt Date: 20120819
  Transmission Date: 20120928
  Serious: Yes (Other)
  Sender: FDA-Public Use
  Company Number: FI-PFIZER INC-2012146783

PATIENT
  Age: 50 Year
  Sex: Female

DRUGS (2)
  1. LYRICA [Suspect]
     Indication: NEURALGIA
     Dosage: UNK
  2. DESOGESTREL AND ETHINYL ESTRADIOL [Concomitant]

REACTIONS (7)
  - VOMITING [None]
  - FATIGUE [None]
  - LIMB OPERATION [None]
  - MUSCULOSKELETAL STIFFNESS [None]
  - IMPAIRED DRIVING ABILITY [None]
  - OEDEMA PERIPHERAL [None]
  - NECK PAIN [None]
